FAERS Safety Report 21902896 (Version 4)
Quarter: 2023Q2

REPORT INFORMATION
  Report Type: Report from Study
  Country: US (occurrence: US)
  Receive Date: 20230124
  Receipt Date: 20230628
  Transmission Date: 20230722
  Serious: No
  Sender: FDA-Public Use
  Company Number: US-002147023-NVSC2023US013625

PATIENT
  Age: 65 Year
  Sex: Female

DRUGS (3)
  1. ENTRESTO [Suspect]
     Active Substance: SACUBITRIL\VALSARTAN
     Indication: Product used for unknown indication
     Dosage: 1 DOSAGE FORM, BID
     Route: 048
     Dates: start: 202206
  2. COREG [Suspect]
     Active Substance: CARVEDILOL
     Indication: Product used for unknown indication
     Dosage: UNK, BID
     Route: 065
  3. COREG [Suspect]
     Active Substance: CARVEDILOL
     Dosage: UNK, QD
     Route: 065

REACTIONS (5)
  - Stress [Unknown]
  - Malaise [Unknown]
  - Blood pressure diastolic increased [Unknown]
  - Anxiety [Unknown]
  - Hypotension [Recovering/Resolving]

NARRATIVE: CASE EVENT DATE: 20230622
